FAERS Safety Report 6022025-5 (Version None)
Quarter: 2008Q4

REPORT INFORMATION
  Report Type: 
  Country: None (occurrence: None)
  Receive Date: 20081229
  Receipt Date: 20081223
  Transmission Date: 20090506
  Serious: Yes (Death, Other)
  Sender: FDA-Public Use
  Company Number: US-ASTRAZENECA-2008AC03253

PATIENT
  Age: 23 Year
  Sex: Female

DRUGS (7)
  1. QUETIAPINE [Suspect]
     Route: 048
  2. BUPROPION HCL [Suspect]
  3. COCAINE [Suspect]
  4. BENZODIAZEPINE [Suspect]
  5. MORPHINE [Suspect]
  6. METHADON HCL TAB [Suspect]
  7. CYCLOBENZAPRINE HCL [Suspect]

REACTIONS (3)
  - COMPLETED SUICIDE [None]
  - CONVULSION [None]
  - HYPOTENSION [None]
